FAERS Safety Report 14317946 (Version 1)
Quarter: 2017Q4

REPORT INFORMATION
  Report Type: Report from Study
  Country: DO (occurrence: DO)
  Receive Date: 20171222
  Receipt Date: 20171222
  Transmission Date: 20180321
  Serious: Yes (Other)
  Sender: FDA-Public Use
  Company Number: PHHY2017DO183554

PATIENT
  Age: 41 Year
  Sex: Female

DRUGS (1)
  1. GILENYA [Suspect]
     Active Substance: FINGOLIMOD HYDROCHLORIDE
     Indication: PRODUCT USED FOR UNKNOWN INDICATION
     Dosage: UNK
     Route: 065

REACTIONS (10)
  - Asthenia [Unknown]
  - Optic neuritis [Unknown]
  - Mood altered [Unknown]
  - Vision blurred [Recovering/Resolving]
  - Gait disturbance [Unknown]
  - Multiple sclerosis [Unknown]
  - Dysphagia [Unknown]
  - Vertigo [Unknown]
  - Limb discomfort [Unknown]
  - Fatigue [Unknown]
